FAERS Safety Report 15209488 (Version 1)
Quarter: 2018Q3

REPORT INFORMATION
  Report Type: Spontaneous
  Country: US (occurrence: US)
  Receive Date: 20180629
  Receipt Date: 20180629
  Transmission Date: 20181010
  Serious: Yes (Hospitalization)
  Sender: FDA-Public Use
  Company Number: None

PATIENT
  Age: 76 Year
  Sex: Male
  Weight: 89 kg

DRUGS (4)
  1. VINCRISTINE SULFATE. [Suspect]
     Active Substance: VINCRISTINE SULFATE
     Dates: end: 20180517
  2. MERCAPTOPURINE. [Suspect]
     Active Substance: MERCAPTOPURINE
     Dates: end: 20180502
  3. PREDNISONE. [Suspect]
     Active Substance: PREDNISONE
     Dates: end: 20180614
  4. METHOTREXATE. [Suspect]
     Active Substance: METHOTREXATE
     Dates: end: 20180502

REACTIONS (8)
  - Hypotension [None]
  - Dyspnoea [None]
  - Cough [None]
  - Nausea [None]
  - Pyrexia [None]
  - Pneumonia [None]
  - Condition aggravated [None]
  - Productive cough [None]

NARRATIVE: CASE EVENT DATE: 20180623
